FAERS Safety Report 13736878 (Version 1)
Quarter: 2017Q3

REPORT INFORMATION
  Report Type: Spontaneous
  Country: US (occurrence: US)
  Receive Date: 20170710
  Receipt Date: 20170710
  Transmission Date: 20171127
  Serious: Yes (Hospitalization)
  Sender: FDA-Public Use
  Company Number: None

PATIENT
  Age: 2 Year
  Sex: Male
  Weight: 13.02 kg

DRUGS (15)
  1. ERYTHROMYCIN. [Concomitant]
     Active Substance: ERYTHROMYCIN
  2. GLYCOPYRROLATE. [Concomitant]
     Active Substance: GLYCOPYRROLATE
  3. CLOBAZAM [Concomitant]
     Active Substance: CLOBAZAM
  4. ESMEPRAZOLE [Concomitant]
  5. BRIVARACETAM [Concomitant]
     Active Substance: BRIVARACETAM
  6. CETIRIZINE [Concomitant]
     Active Substance: CETIRIZINE HYDROCHLORIDE
  7. LEVALBUTEROL. [Concomitant]
     Active Substance: LEVALBUTEROL
  8. MELATONIN [Concomitant]
     Active Substance: MELATONIN
  9. DIAZEPAM RECTAL GEL (DIASTAT) [Concomitant]
  10. FLUTICASONE-SALMETROL (ADVAIR HFA) [Concomitant]
  11. CANNIBIDIOL ORAL SOLUTION (300MG/ML) [Suspect]
     Active Substance: CANNABIDIOL
     Indication: SEIZURE
     Dosage: ROUTE - PER G-TUBE
     Dates: start: 20170411
  12. LANSOPRAZOLE. [Concomitant]
     Active Substance: LANSOPRAZOLE
  13. FLUTICASONE NASAL SPRAY [Concomitant]
     Active Substance: FLUTICASONE
  14. CLONIDINE. [Concomitant]
     Active Substance: CLONIDINE
  15. BIFIDOBACTERIUM-LACTOBACILLUS (FLORAGEN) [Concomitant]

REACTIONS (4)
  - Aspiration [None]
  - Salivary hypersecretion [None]
  - Atelectasis [None]
  - Pneumonia [None]

NARRATIVE: CASE EVENT DATE: 20170523
